FAERS Safety Report 7208817-5 (Version None)
Quarter: 2010Q4

REPORT INFORMATION
  Report Type: 
  Country: None (occurrence: None)
  Receive Date: 20101222
  Receipt Date: 20101210
  Transmission Date: 20110411
  Serious: Yes (Hospitalization)
  Sender: FDA-Public Use
  Company Number: 023560

PATIENT

DRUGS (4)
  1. LACOSAMIDE [Suspect]
  2. PHENYTOIN [Concomitant]
  3. TOPIRAMATE [Concomitant]
  4. VALPROATE SODIUM [Concomitant]

REACTIONS (1)
  - EPILEPSY [None]
